FAERS Safety Report 17734517 (Version 1)
Quarter: 2020Q2

REPORT INFORMATION
  Report Type: Spontaneous
  Country: FR (occurrence: FR)
  Receive Date: 20200501
  Receipt Date: 20200501
  Transmission Date: 20200714
  Serious: Yes (Hospitalization)
  Sender: FDA-Public Use
  Company Number: FR-TEVA-2020-FR-1227590

PATIENT
  Age: 17 Year
  Sex: Male
  Weight: 57 kg

DRUGS (3)
  1. PANTOPRAZOLE [Suspect]
     Active Substance: PANTOPRAZOLE
     Indication: PRODUCT USED FOR UNKNOWN INDICATION
     Dosage: 40 MG
     Route: 048
     Dates: start: 201911
  2. KALINOX 170 BAR, GAZ POUR INHALATION, EN BOUTEILLE [Suspect]
     Active Substance: NITROUS OXIDE\OXYGEN
     Indication: PAIN
     Dosage: 4 DOSAGE FORMS
     Route: 055
     Dates: end: 20200102
  3. HYDREA [Suspect]
     Active Substance: HYDROXYUREA
     Indication: SICKLE CELL DISEASE
     Dosage: 1500 MG
     Route: 048

REACTIONS (3)
  - Confusional state [Recovered/Resolved]
  - Anaemia vitamin B12 deficiency [Recovering/Resolving]
  - Subacute combined cord degeneration [Recovering/Resolving]

NARRATIVE: CASE EVENT DATE: 201912
